FAERS Safety Report 4599161-3 (Version None)
Quarter: 2005Q1

REPORT INFORMATION
  Report Type: 
  Country: None (occurrence: None)
  Receive Date: 20050303
  Receipt Date: 20050215
  Transmission Date: 20050727
  Serious: No
  Sender: FDA-Public Use
  Company Number: USA041286695

PATIENT
  Age: 16 Year
  Sex: Male
  Weight: 100 kg

DRUGS (3)
  1. STRATTERA [Suspect]
     Indication: ATTENTION DEFICIT/HYPERACTIVITY DISORDER
     Dosage: 120 MG
     Dates: start: 20040101, end: 20041220
  2. DAILY VITAMINS [Concomitant]
  3. EFFEXOR [Concomitant]

REACTIONS (5)
  - BODY HEIGHT INCREASED [None]
  - FATIGUE [None]
  - HEPATIC STEATOSIS [None]
  - VIRAL INFECTION [None]
  - WEIGHT INCREASED [None]
